FAERS Safety Report 24387532 (Version 4)
Quarter: 2024Q4

REPORT INFORMATION
  Report Type: Spontaneous
  Country: US (occurrence: US)
  Receive Date: 20241002
  Receipt Date: 20241129
  Transmission Date: 20250115
  Serious: No
  Sender: PFIZER
  Company Number: US-PFIZER INC-202400265341

PATIENT
  Age: 13 Year
  Sex: Female
  Weight: 39.46 kg

DRUGS (5)
  1. GENOTROPIN [Suspect]
     Active Substance: SOMATROPIN
     Indication: Growth hormone deficiency
     Dosage: 1.8 MG, 1X/DAY (DAILY)
     Dates: start: 202208
  2. GENOTROPIN [Suspect]
     Active Substance: SOMATROPIN
     Dosage: 1.8 MG, 1X/DAY (DAILY)
  3. GENOTROPIN [Suspect]
     Active Substance: SOMATROPIN
     Dosage: 1.8 MG, 1X/DAY (DAILY)
  4. GENOTROPIN [Suspect]
     Active Substance: SOMATROPIN
     Dosage: 1.8 MG, 1X/DAY (DAILY)
  5. ATOMOXETINE [Concomitant]
     Active Substance: ATOMOXETINE HYDROCHLORIDE
     Indication: Attention deficit hyperactivity disorder
     Dosage: 40 MG, 1X/DAY

REACTIONS (6)
  - Device information output issue [Unknown]
  - Expired device used [Unknown]
  - Accidental overdose [Unknown]
  - Device breakage [Unknown]
  - Device delivery system issue [Unknown]
  - Device occlusion [Unknown]

NARRATIVE: CASE EVENT DATE: 20240925
